FAERS Safety Report 4808352-5 (Version None)
Quarter: 2005Q4

REPORT INFORMATION
  Report Type: 
  Country: None (occurrence: None)
  Receive Date: 20051020
  Receipt Date: 20051020
  Transmission Date: 20060501
  Serious: Yes (Hospitalization)
  Sender: FDA-Public Use
  Company Number: None

PATIENT
  Age: 60 Year
  Sex: Male

DRUGS (14)
  1. WARFARIN [Suspect]
     Indication: ATRIAL FIBRILLATION
     Dosage: 5 MG
  2. WARFARIN [Suspect]
     Indication: THROMBOSIS PROPHYLAXIS
     Dosage: 5 MG
  3. ASPIRIN [Suspect]
     Indication: CORONARY ARTERY DISEASE
     Dosage: 81MG,  325MG
  4. ALBUTEROL [Concomitant]
  5. AMIODARONE HCL [Concomitant]
  6. AZITHROMYCIN [Concomitant]
  7. ZYBAN [Concomitant]
  8. BUSPAR [Concomitant]
  9. CARVEDILOL [Concomitant]
  10. DIGOXIN [Concomitant]
  11. LASIX [Concomitant]
  12. HYDROXYZINE [Concomitant]
  13. M.V.I. [Concomitant]
  14. OMEPRAZOLE [Concomitant]

REACTIONS (2)
  - EPISTAXIS [None]
  - INTERNATIONAL NORMALISED RATIO INCREASED [None]
